FAERS Safety Report 9464316 (Version 1)
Quarter: 2013Q3

REPORT INFORMATION
  Report Type: Spontaneous
  Country: US (occurrence: US)
  Receive Date: 20130819
  Receipt Date: 20130819
  Transmission Date: 20140515
  Serious: No
  Sender: FDA-Public Use
  Company Number: US-PFIZER INC-2013235923

PATIENT
  Sex: Female

DRUGS (3)
  1. PRISTIQ [Suspect]
     Indication: ANXIETY
     Dosage: 50 MG, 1X/DAY
  2. PRISTIQ [Suspect]
     Indication: AGITATION
     Dosage: 100 MG, 1X/DAY
  3. PRISTIQ [Suspect]
     Indication: ANGER
     Dosage: 50 MG, ALTERNATE DAY

REACTIONS (2)
  - Malaise [Unknown]
  - Off label use [Unknown]
